FAERS Safety Report 10143168 (Version 1)
Quarter: 2014Q2

REPORT INFORMATION
  Report Type: Spontaneous
  Country: US (occurrence: None)
  Receive Date: 20140428
  Receipt Date: 20140428
  Transmission Date: 20141212
  Serious: Yes (Hospitalization, Other)
  Sender: FDA-Public Use
  Company Number: 2013SA112370

PATIENT
  Age: 2 Month
  Sex: Male
  Weight: 9.6 kg

DRUGS (3)
  1. MYOZYME [Suspect]
     Indication: GLYCOGEN STORAGE DISEASE TYPE II
     Route: 042
     Dates: start: 20130113
  2. SOTALOL [Concomitant]
  3. OMEPRAZOLE [Concomitant]

REACTIONS (1)
  - Blood immunoglobulin G increased [None]
